FAERS Safety Report 15348697 (Version 1)
Quarter: 2018Q4

REPORT INFORMATION
  Report Type: Spontaneous
  Country: PL (occurrence: PL)
  Receive Date: 20180904
  Receipt Date: 20180904
  Transmission Date: 20190204
  Serious: Yes (Hospitalization)
  Sender: FDA-Public Use
  Company Number: PL-ALLERGAN-1831633US

PATIENT
  Age: 70 Year
  Sex: Female

DRUGS (7)
  1. ROMAZIC [Suspect]
     Active Substance: ROSUVASTATIN CALCIUM
     Indication: BLOOD CHOLESTEROL INCREASED
     Dosage: 10 MG, QD
     Route: 048
     Dates: start: 201606, end: 201807
  2. NEBIVOLOL HCL - BP [Suspect]
     Active Substance: NEBIVOLOL
     Indication: SUPRAVENTRICULAR EXTRASYSTOLES
     Dosage: 3.75 MG, QD
     Route: 048
     Dates: start: 2016, end: 201806
  3. NEBIVOLOL HCL - BP [Suspect]
     Active Substance: NEBIVOLOL
     Indication: HYPERTENSION
  4. TRIPLIXAM [Suspect]
     Active Substance: AMLODIPINE BESYLATE\INDAPAMIDE\PERINDOPRIL ARGININE
     Indication: HYPERTENSION
     Dosage: 5MG/1.25MG/5MG, QD
     Route: 048
     Dates: start: 20171031
  5. NILOGRIN [Concomitant]
     Indication: DIZZINESS
     Dosage: 10 MG, QD
     Route: 065
     Dates: start: 2016
  6. TRITTICO [Concomitant]
     Active Substance: TRAZODONE HYDROCHLORIDE
     Indication: PRODUCT USED FOR UNKNOWN INDICATION
     Dosage: 75 MG, QD
     Route: 048
     Dates: start: 201606
  7. CAVINTON [Concomitant]
     Active Substance: VINPOCETINE
     Indication: DIZZINESS
     Dosage: 5 MG, QD
     Route: 048
     Dates: start: 2016

REACTIONS (6)
  - Myalgia [Recovered/Resolved]
  - Blood pressure decreased [Recovered/Resolved]
  - Chest discomfort [Recovered/Resolved]
  - Off label use [Unknown]
  - Palpitations [Recovered/Resolved]
  - Feeling abnormal [Recovered/Resolved]

NARRATIVE: CASE EVENT DATE: 2018
